FAERS Safety Report 16931902 (Version 4)
Quarter: 2025Q2

REPORT INFORMATION
  Report Type: Report from Study
  Country: US (occurrence: US)
  Receive Date: 20191017
  Receipt Date: 20250625
  Transmission Date: 20250716
  Serious: Yes (Life-Threatening, Hospitalization)
  Sender: TAKEDA
  Company Number: US-SHIRE-US201934785

PATIENT
  Age: 58 Year
  Sex: Female

DRUGS (10)
  1. PARATHYROID HORMONE [Suspect]
     Active Substance: PARATHYROID HORMONE
     Indication: Post procedural hypoparathyroidism
  2. PARATHYROID HORMONE [Suspect]
     Active Substance: PARATHYROID HORMONE
     Indication: Malabsorption
     Dosage: UNK UNK, QD
  3. PARATHYROID HORMONE [Suspect]
     Active Substance: PARATHYROID HORMONE
     Indication: Hypoparathyroidism
  4. CALCIUM [Concomitant]
     Active Substance: CALCIUM
     Indication: Post procedural hypoparathyroidism
  5. CALCIUM [Concomitant]
     Active Substance: CALCIUM
     Indication: Malabsorption
  6. CALCITRIOL [Concomitant]
     Active Substance: CALCITRIOL
     Indication: Post procedural hypoparathyroidism
  7. CALCITRIOL [Concomitant]
     Active Substance: CALCITRIOL
     Indication: Malabsorption
  8. HYDROCHLOROTHIAZIDE [Concomitant]
     Active Substance: HYDROCHLOROTHIAZIDE
     Indication: Post procedural hypoparathyroidism
  9. HYDROCHLOROTHIAZIDE [Concomitant]
     Active Substance: HYDROCHLOROTHIAZIDE
     Indication: Malabsorption
  10. YORVIPATH [Concomitant]
     Active Substance: PALOPEGTERIPARATIDE

REACTIONS (3)
  - Tetany [Unknown]
  - Recalled product [Unknown]
  - Product use in unapproved indication [Unknown]

NARRATIVE: CASE EVENT DATE: 20151105
